FAERS Safety Report 26112604 (Version 1)
Quarter: 2025Q4

REPORT INFORMATION
  Report Type: Spontaneous
  Country: US (occurrence: None)
  Receive Date: 20251202
  Receipt Date: 20251202
  Transmission Date: 20260117
  Serious: Yes (Hospitalization)
  Sender: FDA-CTU
  Company Number: None

PATIENT
  Age: 36 Year
  Sex: Female
  Weight: 164.7 kg

DRUGS (14)
  1. LENALIDOMIDE [Suspect]
     Active Substance: LENALIDOMIDE
     Indication: Plasma cell myeloma
     Dosage: 25 MG DAILY X 14D, 7 D OFF?
     Route: 048
     Dates: start: 20251014
  2. METOPROLOL SUCCINATE [Concomitant]
     Active Substance: METOPROLOL SUCCINATE
     Dates: start: 20251013
  3. LIDOCAINE HYDROCHLORIDE [Concomitant]
     Active Substance: LIDOCAINE HYDROCHLORIDE
     Dates: start: 20251013
  4. PROBIOTICS NOS [Concomitant]
     Active Substance: PROBIOTICS NOS
     Dates: start: 20251013
  5. FENTANYL [Concomitant]
     Active Substance: FENTANYL
     Dates: start: 20251013
  6. ACYCLOVIR [Concomitant]
     Active Substance: ACYCLOVIR
     Dates: start: 20251013
  7. PANTOPRAZOLE [Concomitant]
     Active Substance: PANTOPRAZOLE
     Dates: start: 20251013
  8. LACTOBACILLUS ACIDOPHILUS [Concomitant]
     Active Substance: LACTOBACILLUS ACIDOPHILUS
     Dates: start: 20251013
  9. GABAPENTIN [Concomitant]
     Active Substance: GABAPENTIN
     Dates: start: 20251013
  10. SENNA/DOCUSATE SODIUM [Concomitant]
     Active Substance: DOCUSATE SODIUM\SENNOSIDES
     Dates: start: 20251013
  11. IMMUNOTHERAPY AGENT [Concomitant]
  12. OXYCODONE [Concomitant]
     Active Substance: OXYCODONE
     Dates: start: 20251013
  13. ELIQUIS [Concomitant]
     Active Substance: APIXABAN
  14. AMLODIPINE BESYLATE [Concomitant]
     Active Substance: AMLODIPINE BESYLATE
     Dates: start: 20251013

REACTIONS (2)
  - Pulmonary embolism [None]
  - Therapy cessation [None]

NARRATIVE: CASE EVENT DATE: 20251124
